FAERS Safety Report 14738030 (Version 1)
Quarter: 2018Q2

REPORT INFORMATION
  Report Type: Spontaneous
  Country: JP (occurrence: JP)
  Receive Date: 20180409
  Receipt Date: 20180409
  Transmission Date: 20180711
  Serious: Yes (Other)
  Sender: FDA-Public Use
  Company Number: JP-PFIZER INC-2018138096

PATIENT
  Age: 65 Year
  Sex: Male

DRUGS (11)
  1. PIMARICIN [Concomitant]
     Active Substance: NATAMYCIN
     Dosage: UNK, 2X/DAY
     Route: 047
  2. VORICONAZOLE. [Concomitant]
     Active Substance: VORICONAZOLE
     Indication: ACANTHAMOEBA KERATITIS
     Dosage: 200 MG, UNK
     Route: 041
  3. ITRACONAZOLE. [Concomitant]
     Active Substance: ITRACONAZOLE
     Indication: ACANTHAMOEBA KERATITIS
     Dosage: 200 MG, UNK
     Route: 048
  4. ACETAZOLAMIDE. [Concomitant]
     Active Substance: ACETAZOLAMIDE
     Indication: ACANTHAMOEBA KERATITIS
     Dosage: 500 MG, DAILY
     Route: 048
  5. CHLORHEXIDINE GLUCONATE. [Suspect]
     Active Substance: CHLORHEXIDINE GLUCONATE
     Indication: ACANTHAMOEBA KERATITIS
     Dosage: EVERY 1 HOUR
     Route: 047
  6. PIMARICIN [Concomitant]
     Active Substance: NATAMYCIN
     Indication: ACANTHAMOEBA KERATITIS
     Dosage: UNK, 4X/DAY
     Route: 047
  7. GATIFLOXACIN HYDRATE [Concomitant]
     Indication: ACANTHAMOEBA KERATITIS
     Dosage: UNK UNK, 4X/DAY
     Route: 047
  8. VORICONAZOLE. [Suspect]
     Active Substance: VORICONAZOLE
     Indication: ACANTHAMOEBA KERATITIS
     Dosage: EVERY 1 HOUR
     Route: 047
  9. ACETAZOLAMIDE. [Concomitant]
     Active Substance: ACETAZOLAMIDE
     Dosage: 750 MG, DAILY
     Route: 048
  10. DORZOLAMIDE TIMOLOL [Concomitant]
     Active Substance: DORZOLAMIDE
     Indication: ACANTHAMOEBA KERATITIS
     Dosage: UNK, 2X/DAY
     Route: 047
  11. LATANOPROST. [Concomitant]
     Active Substance: LATANOPROST
     Indication: ACANTHAMOEBA KERATITIS
     Dosage: UNK, 1X/DAY
     Route: 047

REACTIONS (6)
  - Eye inflammation [Unknown]
  - Iris adhesions [Unknown]
  - Product use issue [Unknown]
  - Hyphaema [Unknown]
  - Hypopyon [Unknown]
  - Intraocular pressure increased [Unknown]
